FAERS Safety Report 17490465 (Version 1)
Quarter: 2020Q1

REPORT INFORMATION
  Report Type: Spontaneous
  Country: US (occurrence: US)
  Receive Date: 20200303
  Receipt Date: 20200303
  Transmission Date: 20200409
  Serious: No
  Sender: FDA-Public Use
  Company Number: US-AKORN PHARMACEUTICALS-2019AKN00533

PATIENT
  Age: 16 Year
  Sex: Male
  Weight: 68.03 kg

DRUGS (2)
  1. MYORISAN [Suspect]
     Active Substance: ISOTRETINOIN
     Indication: ACNE
     Dosage: 20 MG, 2X/DAY ^WITH FATTY FOODS^
     Route: 048
     Dates: start: 20190308, end: 20190312
  2. UNSPECIFIED OTC CREAMS [Concomitant]
     Route: 061

REACTIONS (4)
  - Dizziness [Recovered/Resolved]
  - Myalgia [Recovered/Resolved]
  - Pain [Recovered/Resolved]
  - Vision blurred [Recovered/Resolved]

NARRATIVE: CASE EVENT DATE: 201903
